FAERS Safety Report 4795400-4 (Version None)
Quarter: 2005Q4

REPORT INFORMATION
  Report Type: 
  Country: None (occurrence: None)
  Receive Date: 20051006
  Receipt Date: 20050920
  Transmission Date: 20060501
  Serious: Yes (Other)
  Sender: FDA-Public Use
  Company Number: 430016M05DEU

PATIENT
  Sex: Male

DRUGS (1)
  1. MITOXANTRONE [Suspect]
     Dosage: SEE IMAGE

REACTIONS (1)
  - OSTEONECROSIS [None]
